FAERS Safety Report 14000367 (Version 3)
Quarter: 2017Q4

REPORT INFORMATION
  Report Type: Spontaneous
  Country: ES (occurrence: ES)
  Receive Date: 20170922
  Receipt Date: 20171030
  Transmission Date: 20180321
  Serious: Yes (Hospitalization, Other)
  Sender: FDA-Public Use
  Company Number: ES-ASTRAZENECA-2017SE95747

PATIENT
  Age: 976 Month
  Sex: Male

DRUGS (16)
  1. DUROGESIC [Concomitant]
     Active Substance: FENTANYL
     Indication: PAIN
     Route: 058
     Dates: start: 20170901
  2. EMCONCOR [Concomitant]
     Active Substance: BISOPROLOL FUMARATE
  3. SERETIDE [Concomitant]
     Active Substance: FLUTICASONE PROPIONATE\SALMETEROL XINAFOATE
     Dosage: 25/125UG, 2DF, EVERY 12 HOURS
  4. SEGURIL [Concomitant]
     Active Substance: FUROSEMIDE
  5. FLUMIL [Concomitant]
     Active Substance: ACETYLCYSTEINE
     Indication: SECRETION DISCHARGE
     Dates: start: 20170901
  6. XARELTO [Concomitant]
     Active Substance: RIVAROXABAN
  7. ADIRO [Concomitant]
     Active Substance: ASPIRIN
  8. OMEPRAZOL [Concomitant]
     Active Substance: OMEPRAZOLE
  9. ZYLORIC [Concomitant]
     Active Substance: ALLOPURINOL
  10. TAGRISSO [Suspect]
     Active Substance: OSIMERTINIB
     Indication: LUNG ADENOCARCINOMA
     Route: 048
     Dates: start: 20170619
  11. FENTANYL. [Concomitant]
     Active Substance: FENTANYL
     Indication: PAIN
     Route: 058
     Dates: start: 20170901
  12. APOCARD [Concomitant]
     Active Substance: FLECAINIDE ACETATE
  13. PROLIA [Concomitant]
     Active Substance: DENOSUMAB
     Dosage: 1 SYRINGE/180 DAYS; 60 MG/180 DAYS, EVERY 6 IN MORNING
  14. MYCOSTATIN [Concomitant]
     Active Substance: NYSTATIN
     Dosage: 5ML, EVERY 8 HOURS
  15. ACETYLCYSTEINE. [Concomitant]
     Active Substance: ACETYLCYSTEINE
     Indication: SECRETION DISCHARGE
     Dosage: 600 DAILY
     Route: 048
     Dates: start: 20170901
  16. TAGRISSO [Suspect]
     Active Substance: OSIMERTINIB
     Indication: LUNG ADENOCARCINOMA
     Dosage: 40.0MG UNKNOWN
     Route: 048
     Dates: start: 201708

REACTIONS (8)
  - Cardiac disorder [Unknown]
  - Diarrhoea [Unknown]
  - Acute kidney injury [Unknown]
  - Mucosal inflammation [Unknown]
  - Asthenia [Unknown]
  - Cardiac failure congestive [Recovered/Resolved]
  - Atrial fibrillation [Unknown]
  - Atelectasis [Unknown]

NARRATIVE: CASE EVENT DATE: 201708
